FAERS Safety Report 9207948 (Version 1)
Quarter: 2013Q2

REPORT INFORMATION
  Report Type: Spontaneous
  Country: US (occurrence: US)
  Receive Date: 20130403
  Receipt Date: 20130403
  Transmission Date: 20140414
  Serious: No
  Sender: FDA-Public Use
  Company Number: US-ASTRAZENECA-2013SE18698

PATIENT
  Age: 52 Year
  Sex: Male
  Weight: 72.6 kg

DRUGS (6)
  1. NEXIUM [Suspect]
     Indication: DYSPEPSIA
     Route: 048
     Dates: start: 201301, end: 201302
  2. NEXIUM [Suspect]
     Indication: ERUCTATION
     Route: 048
     Dates: start: 201301, end: 201302
  3. PRILOSEC [Suspect]
     Indication: DYSPEPSIA
     Route: 048
     Dates: start: 201302, end: 201302
  4. PRILOSEC [Suspect]
     Indication: ERUCTATION
     Route: 048
     Dates: start: 201302, end: 201302
  5. LOSARTIN [Concomitant]
     Indication: BLOOD PRESSURE
     Route: 048
  6. AMLODIPINE [Concomitant]
     Indication: BLOOD PRESSURE
     Route: 048

REACTIONS (6)
  - Burning sensation [Unknown]
  - Eructation [Unknown]
  - Hyperchlorhydria [Unknown]
  - Sleep disorder due to general medical condition, insomnia type [Unknown]
  - Drug dose omission [Unknown]
  - Drug ineffective [Unknown]
